FAERS Safety Report 23900475 (Version 1)
Quarter: 2024Q2

REPORT INFORMATION
  Report Type: Spontaneous
  Country: US (occurrence: None)
  Receive Date: 20240526
  Receipt Date: 20240526
  Transmission Date: 20240715
  Serious: No
  Sender: FDA-Public Use
  Company Number: US-ROCHE-3331041

PATIENT
  Age: 26 Year
  Sex: Male

DRUGS (2)
  1. OCREVUS [Suspect]
     Active Substance: OCRELIZUMAB
     Indication: Multiple sclerosis
     Dosage: PATIENT RECEIVED FIRST HALF-DOSE OF OCREVUS ;ONGOING: YES
     Route: 042
     Dates: start: 20230301
  2. OCREVUS [Suspect]
     Active Substance: OCRELIZUMAB
     Dosage: SECOND DOSE, 1ST FULL DOSE
     Route: 042
     Dates: start: 20230815

REACTIONS (2)
  - Migraine [Recovered/Resolved]
  - Fatigue [Recovered/Resolved]

NARRATIVE: CASE EVENT DATE: 20230301
